FAERS Safety Report 12919868 (Version 2)
Quarter: 2016Q4

REPORT INFORMATION
  Report Type: Spontaneous
  Country: JP (occurrence: JP)
  Receive Date: 20161107
  Receipt Date: 20161114
  Transmission Date: 20170207
  Serious: Yes (Life-Threatening, Hospitalization, Other)
  Sender: FDA-Public Use
  Company Number: JP-PFIZER INC-2016510254

PATIENT
  Age: 49 Year
  Sex: Male

DRUGS (4)
  1. AMPICILLIN SODIUM W/SULBACTAM SODIUM [Concomitant]
     Active Substance: AMPICILLIN SODIUM\SULBACTAM SODIUM
     Indication: DIARRHOEA
     Dosage: UNK
  2. CISPLATIN. [Suspect]
     Active Substance: CISPLATIN
     Indication: SMALL CELL LUNG CANCER
     Dosage: 60 MG/M2, CYCLIC
  3. AMPICILLIN SODIUM W/SULBACTAM SODIUM [Concomitant]
     Active Substance: AMPICILLIN SODIUM\SULBACTAM SODIUM
     Indication: PYREXIA
  4. IRINOTECAN HCL [Suspect]
     Active Substance: IRINOTECAN HYDROCHLORIDE
     Indication: SMALL CELL LUNG CANCER
     Dosage: 60 MG/M2, CYCLIC

REACTIONS (6)
  - Antidiuretic hormone abnormality [Unknown]
  - Pantoea agglomerans infection [Recovered/Resolved]
  - Hyponatraemia [Unknown]
  - Septic shock [Recovered/Resolved]
  - Diarrhoea [Unknown]
  - Disseminated intravascular coagulation [Unknown]
